FAERS Safety Report 4316389-8 (Version None)
Quarter: 2004Q1

REPORT INFORMATION
  Report Type: 
  Country: None (occurrence: None)
  Receive Date: 20040311
  Receipt Date: 20040226
  Transmission Date: 20041129
  Serious: Yes (Other)
  Sender: FDA-Public Use
  Company Number: K200400263

PATIENT
  Age: 64 Year
  Sex: Female

DRUGS (7)
  1. ALTACE [Suspect]
     Dates: start: 20031103
  2. CRESTOR [Suspect]
     Indication: HYPERCHOLESTEROLAEMIA
     Dosage: 40 MG, QD, ORAL
     Route: 048
     Dates: start: 20030901, end: 20040101
  3. BENDROFLUAZIDE [Concomitant]
  4. BISOPROLOL [Concomitant]
  5. DILTIAZEM [Concomitant]
  6. ASPIRIN [Concomitant]
  7. OMEPRAZOLE [Concomitant]

REACTIONS (4)
  - DEHYDRATION [None]
  - MYOGLOBINURIA [None]
  - MYOSITIS [None]
  - RENAL FAILURE ACUTE [None]
